FAERS Safety Report 9000552 (Version 3)
Quarter: 2013Q1

REPORT INFORMATION
  Report Type: Spontaneous
  Country: US (occurrence: US)
  Receive Date: 20130107
  Receipt Date: 20130222
  Transmission Date: 20140127
  Serious: Yes (Other)
  Sender: FDA-Public Use
  Company Number: US-BAYER-2013-001343

PATIENT
  Age: 46 Year
  Sex: Female
  Weight: 66.67 kg

DRUGS (4)
  1. MIRENA [Suspect]
     Indication: CONTRACEPTION
     Dosage: 20 MCG/24HR, CONT
     Route: 015
     Dates: start: 20121112, end: 20130115
  2. WELLBUTRIN [Concomitant]
     Dosage: 150 MG, QD
  3. ANTIBIOTICS [Concomitant]
  4. HYDROCODONE W/ACETAMINOPHEN [Concomitant]
     Dosage: UNK

REACTIONS (8)
  - Genital haemorrhage [None]
  - Procedural pain [None]
  - Vomiting [None]
  - Hyperhidrosis [None]
  - Gait disturbance [None]
  - Abdominal pain lower [None]
  - Anxiety [None]
  - Device dislocation [None]
